FAERS Safety Report 9881417 (Version 2)
Quarter: 2014Q1

REPORT INFORMATION
  Report Type: Spontaneous
  Country: US (occurrence: US)
  Receive Date: 20140207
  Receipt Date: 20140228
  Transmission Date: 20141002
  Serious: Yes (Death, Hospitalization, Other)
  Sender: FDA-Public Use
  Company Number: US-BAXTER-2014BAX005643

PATIENT
  Sex: Female

DRUGS (4)
  1. DIANEAL LOW CALCIUM [Suspect]
     Indication: RENAL FAILURE CHRONIC
     Route: 033
     Dates: start: 2011, end: 20140129
  2. DIANEAL LOW CALCIUM [Suspect]
     Indication: RENAL FAILURE CHRONIC
     Route: 033
     Dates: start: 2011, end: 20140129
  3. EXTRANEAL [Suspect]
     Indication: PERITONEAL DIALYSIS
     Route: 033
     Dates: start: 2011, end: 20140129
  4. EXTRANEAL [Suspect]
     Indication: RENAL FAILURE CHRONIC

REACTIONS (7)
  - Cardiogenic shock [Fatal]
  - Osteomyelitis [Unknown]
  - Sepsis [Unknown]
  - General physical health deterioration [Unknown]
  - Blood potassium increased [Unknown]
  - Hypotension [Unknown]
  - Ultrafiltration failure [Unknown]
